FAERS Safety Report 9304700 (Version 12)
Quarter: 2014Q2

REPORT INFORMATION
  Report Type: Report from Study
  Country: DE (occurrence: DE)
  Receive Date: 20130523
  Receipt Date: 20140415
  Transmission Date: 20141212
  Serious: Yes (Hospitalization)
  Sender: FDA-Public Use
  Company Number: DE-ROCHE-1226884

PATIENT
  Age: 26 Year
  Sex: Male
  Weight: 85 kg

DRUGS (7)
  1. ZOLPIDEM TARTRATE [Concomitant]
  2. RIBAVIRIN [Suspect]
     Indication: CHRONIC HEPATITIS C
     Route: 048
     Dates: start: 20130503, end: 20130507
  3. RIBAVIRIN [Suspect]
     Route: 048
     Dates: start: 20130513, end: 20130815
  4. BI 207127 [Suspect]
     Indication: CHRONIC HEPATITIS C
     Dosage: 600MG (3 TABLETS 200MG) TWICE A DAY
     Route: 048
     Dates: start: 20130503, end: 20130507
  5. BI 207127 [Suspect]
     Route: 048
     Dates: start: 20130513, end: 20130815
  6. BI 201335 [Suspect]
     Indication: CHRONIC HEPATITIS C
     Route: 048
     Dates: start: 20130503, end: 20130507
  7. BI 201335 [Suspect]
     Route: 048
     Dates: start: 20130513, end: 20130815

REACTIONS (6)
  - Gingivitis [Recovered/Resolved]
  - Rash [Recovered/Resolved]
  - Gastrooesophageal reflux disease [Recovered/Resolved]
  - Gastritis erosive [Recovered/Resolved]
  - Duodenal ulcer [Recovered/Resolved]
  - Drug abuse [Unknown]
